FAERS Safety Report 24888709 (Version 1)
Quarter: 2025Q1

REPORT INFORMATION
  Report Type: Spontaneous
  Country: FR (occurrence: FR)
  Receive Date: 20250127
  Receipt Date: 20250127
  Transmission Date: 20250409
  Serious: Yes (Hospitalization)
  Sender: RANBAXY
  Company Number: FR-SUN PHARMACEUTICAL INDUSTRIES LTD-2025RR-490433

PATIENT
  Age: 48 Year
  Sex: Female
  Weight: 62.5 kg

DRUGS (10)
  1. PRAVASTATIN [Suspect]
     Active Substance: PRAVASTATIN
     Indication: Dyslipidaemia
     Route: 048
     Dates: end: 202410
  2. ESOMEPRAZOLE [Suspect]
     Active Substance: ESOMEPRAZOLE
     Indication: Prophylaxis against gastrointestinal ulcer
     Dosage: 1 AS NECESSARY, DAILY
     Route: 048
     Dates: end: 20241028
  3. VALACYCLOVIR [Suspect]
     Active Substance: VALACYCLOVIR HYDROCHLORIDE
     Indication: Genital herpes
     Dosage: 500 MILLIGRAM, BID
     Route: 048
     Dates: start: 202409, end: 202409
  4. ACETAMINOPHEN [Suspect]
     Active Substance: ACETAMINOPHEN
     Indication: Pain
     Route: 048
     Dates: end: 202410
  5. INFLIXIMAB [Suspect]
     Active Substance: INFLIXIMAB
     Indication: SAPHO syndrome
     Route: 040
     Dates: start: 20240702, end: 20240702
  6. INFLIXIMAB [Suspect]
     Active Substance: INFLIXIMAB
     Route: 040
     Dates: start: 20240716, end: 20240716
  7. INFLIXIMAB [Suspect]
     Active Substance: INFLIXIMAB
     Route: 040
     Dates: start: 20240813, end: 20240813
  8. INFLIXIMAB [Suspect]
     Active Substance: INFLIXIMAB
     Route: 040
     Dates: start: 20240927, end: 20240927
  9. NAPROXEN [Suspect]
     Active Substance: NAPROXEN
     Indication: SAPHO syndrome
     Dosage: 1 AS NECESSARY, DAILY
     Route: 048
     Dates: end: 20241028
  10. DIETARY SUPPLEMENT [Suspect]
     Active Substance: DIETARY SUPPLEMENT
     Indication: Trichorrhexis
     Dosage: 1 DOSAGE FORM, DAILY
     Route: 048
     Dates: start: 20241015

REACTIONS (1)
  - Hepatocellular injury [Not Recovered/Not Resolved]

NARRATIVE: CASE EVENT DATE: 20240925
